FAERS Safety Report 5510537-X (Version None)
Quarter: 2007Q4

REPORT INFORMATION
  Report Type: 
  Country: None (occurrence: None)
  Receive Date: 20071108
  Receipt Date: 20071029
  Transmission Date: 20080405
  Serious: Yes (Other)
  Sender: FDA-Public Use
  Company Number: AU-ELI_LILLY_AND_COMPANY-AU200710007615

PATIENT
  Age: 19 Year
  Sex: Female
  Weight: 37 kg

DRUGS (10)
  1. LISPRO [Suspect]
     Indication: DIABETES MELLITUS
     Dosage: 20-30 IU PREMEALS
     Route: 065
  2. LISPRO [Suspect]
     Dosage: 24 U, EACH MORNING PREBREAKFAST
     Route: 065
  3. LISPRO [Suspect]
     Dosage: 26 U, PRELUNCH
     Route: 065
  4. LISPRO [Suspect]
     Dosage: 28 U, EACH EVENING PREMEAL
     Route: 065
  5. LISPRO [Suspect]
     Dosage: 20 U, EACH MORNING PREBREAKFAST
     Route: 065
  6. LISPRO [Suspect]
     Dosage: 20 U, PRELUNCH
  7. LISPRO [Suspect]
     Dosage: 27 U, EACH EVENING PREMEAL
     Route: 065
  8. INSULIN DETEMIR [Concomitant]
     Indication: DIABETIC KETOACIDOSIS
     Dosage: 26 U, EACH EVENING BEFORE BED
     Route: 065
  9. INSULIN DETEMIR [Concomitant]
     Dosage: 32 U, EACH EVENING PREBED
     Route: 065
  10. INSULIN DETEMIR [Concomitant]
     Dosage: 30 U, EACH EVENING PREBED
     Route: 065

REACTIONS (6)
  - ASCITES [None]
  - DYSPNOEA EXERTIONAL [None]
  - FACE OEDEMA [None]
  - OEDEMA PERIPHERAL [None]
  - ORTHOPNOEA [None]
  - PLEURAL EFFUSION [None]
